FAERS Safety Report 4879867-9 (Version None)
Quarter: 2006Q1

REPORT INFORMATION
  Report Type: 
  Country: None (occurrence: None)
  Receive Date: 20060113
  Receipt Date: 20050318
  Transmission Date: 20060701
  Serious: Yes (Hospitalization, Disabling)
  Sender: FDA-Public Use
  Company Number: US-MERCK-0503USA03814

PATIENT
  Age: 77 Year
  Sex: Male
  Weight: 86 kg

DRUGS (4)
  1. VIOXX [Suspect]
     Indication: ARTHRITIS
     Route: 048
     Dates: start: 20000331, end: 20040813
  2. ASPIRIN [Concomitant]
     Route: 065
  3. ATENOLOL [Concomitant]
     Route: 065
  4. MEDROL [Concomitant]
     Route: 065

REACTIONS (16)
  - ANXIETY [None]
  - ARTHRITIS [None]
  - AZOTAEMIA [None]
  - BENIGN PROSTATIC HYPERPLASIA [None]
  - BLOOD GLUCOSE INCREASED [None]
  - CEREBELLAR INFARCTION [None]
  - CEREBROVASCULAR ACCIDENT [None]
  - EMOTIONAL DISORDER [None]
  - HYPERLIPIDAEMIA [None]
  - HYPOTENSION [None]
  - INFARCTION [None]
  - PAIN [None]
  - SINUS BRADYCARDIA [None]
  - SYNCOPE VASOVAGAL [None]
  - VENTRICULAR HYPERTROPHY [None]
  - VERTEBRAL ARTERY OCCLUSION [None]
